FAERS Safety Report 4577400-2 (Version None)
Quarter: 2005Q1

REPORT INFORMATION
  Report Type: 
  Country: None (occurrence: None)
  Receive Date: 20050208
  Receipt Date: 20050125
  Transmission Date: 20050727
  Serious: Yes (Death)
  Sender: FDA-Public Use
  Company Number: S05-UKI-00427-01

PATIENT
  Age: 76 Year
  Sex: Female

DRUGS (2)
  1. ESCITALOPRAM OXALATE [Suspect]
  2. QUININE [Concomitant]

REACTIONS (1)
  - CEREBROVASCULAR ACCIDENT [None]
